FAERS Safety Report 6519273-4 (Version None)
Quarter: 2009Q4

REPORT INFORMATION
  Report Type: 
  Country: None (occurrence: None)
  Receive Date: 20091228
  Receipt Date: 20091222
  Transmission Date: 20100525
  Serious: Yes (Death, Other)
  Sender: FDA-Public Use
  Company Number: PHHY2009MX57890

PATIENT
  Age: 81 Year
  Sex: Female

DRUGS (2)
  1. STALEVO 100 [Suspect]
     Dosage: 1 DF, QD
     Route: 048
  2. CARBIDOPA AND LEVODOPA [Concomitant]

REACTIONS (2)
  - CARDIAC ARREST [None]
  - COAGULATION FACTOR DECREASED [None]
